FAERS Safety Report 6298691-6 (Version None)
Quarter: 2009Q3

REPORT INFORMATION
  Report Type: 
  Country: None (occurrence: None)
  Receive Date: 20090806
  Receipt Date: 20070614
  Transmission Date: 20100115
  Serious: Yes (Other)
  Sender: FDA-Public Use
  Company Number: US-ASTRAZENECA-2006UW21877

PATIENT
  Age: 14339 Day
  Sex: Female
  Weight: 84.8 kg

DRUGS (20)
  1. SEROQUEL [Suspect]
     Indication: SCHIZOPHRENIA
     Dosage: 150 - 600 MG
     Route: 048
     Dates: start: 19970101, end: 20060101
  2. SEROQUEL [Suspect]
     Indication: DEPRESSION
     Dosage: 150 - 600 MG
     Route: 048
     Dates: start: 19970101, end: 20060101
  3. SEROQUEL [Suspect]
     Dosage: 25 MG-400 MG
     Route: 048
     Dates: start: 19980511
  4. SEROQUEL [Suspect]
     Dosage: 25 MG-400 MG
     Route: 048
     Dates: start: 19980511
  5. HALDOL [Concomitant]
     Dates: start: 19971128
  6. NAVANE [Concomitant]
  7. RISPERDAL [Concomitant]
  8. ZYPREXA [Concomitant]
  9. AMBIEN [Concomitant]
     Dosage: 10 MG-20 MG
     Dates: start: 19971202
  10. XANAX [Concomitant]
     Dosage: 0.5 MG-1.5 MG
     Dates: start: 20010409
  11. REMERON [Concomitant]
     Dates: start: 19971129
  12. VIOXX [Concomitant]
     Dates: start: 20010410
  13. CATAPRES [Concomitant]
     Indication: HYPERTENSION
     Dates: start: 19971128
  14. ZOLOFT [Concomitant]
     Indication: DEPRESSION
     Dosage: 50 MG-200 MG
     Dates: start: 20010409
  15. PROTONIX [Concomitant]
     Dates: start: 20010409
  16. GLUCOPHAGE [Concomitant]
     Dates: start: 19971128
  17. TYLENOL (CAPLET) [Concomitant]
     Dates: start: 19960710
  18. ATIVAN [Concomitant]
     Dosage: 1 MG-2 MG
     Dates: start: 19971128
  19. ZANAFLEX [Concomitant]
     Indication: PAIN
     Dates: start: 20010410
  20. OXYCONTIN [Concomitant]
     Indication: PAIN

REACTIONS (3)
  - DIABETES MELLITUS [None]
  - NEUROPATHY PERIPHERAL [None]
  - TYPE 2 DIABETES MELLITUS [None]
